FAERS Safety Report 10420651 (Version 1)
Quarter: 2014Q3

REPORT INFORMATION
  Report Type: Spontaneous
  Country: US (occurrence: None)
  Receive Date: 20140714
  Receipt Date: 20140714
  Transmission Date: 20150326
  Serious: No
  Sender: FDA-Public Use
  Company Number: 2014US003112

PATIENT
  Age: 52 Year
  Sex: Female

DRUGS (8)
  1. ICLUSIG [Suspect]
     Active Substance: PONATINIB
     Indication: ACUTE LYMPHOCYTIC LEUKAEMIA
     Route: 048
     Dates: start: 20140210, end: 201403
  2. ACYCLOVIR. [Concomitant]
     Active Substance: ACYCLOVIR
  3. COLACE [Concomitant]
     Active Substance: DOCUSATE SODIUM
  4. SANCTURA (TROSPIUM CHLORIDE) [Concomitant]
  5. LISINOPRIL. [Concomitant]
     Active Substance: LISINOPRIL
  6. CEFTRIAXONE. [Concomitant]
     Active Substance: CEFTRIAXONE
  7. CARVEDILOL. [Concomitant]
     Active Substance: CARVEDILOL
  8. FLUCONAZOLE) [Concomitant]

REACTIONS (1)
  - Liver function test abnormal [None]

NARRATIVE: CASE EVENT DATE: 201403
